FAERS Safety Report 4591695-0 (Version None)
Quarter: 2005Q1

REPORT INFORMATION
  Report Type: 
  Country: None (occurrence: None)
  Receive Date: 20050218
  Receipt Date: 20050207
  Transmission Date: 20050727
  Serious: No
  Sender: FDA-Public Use
  Company Number: 2004084294

PATIENT
  Sex: Male

DRUGS (2)
  1. NORVASC [Suspect]
     Indication: DIASTOLIC DYSFUNCTION
     Dosage: 5 MG (5 MG, 1 IN 1 D)
     Dates: start: 20040101
  2. NORVASC [Suspect]
     Indication: HYPERTENSION
     Dosage: 5 MG (5 MG, 1 IN 1 D)
     Dates: start: 20040101

REACTIONS (2)
  - EYE PRURITUS [None]
  - OCULAR HYPERAEMIA [None]
